FAERS Safety Report 6463263-7 (Version None)
Quarter: 2009Q4

REPORT INFORMATION
  Report Type: 
  Country: None (occurrence: None)
  Receive Date: 20091130
  Receipt Date: 20090608
  Transmission Date: 20100525
  Serious: Yes (Hospitalization, Other)
  Sender: FDA-Public Use
  Company Number: US-AMGEN-QUU350754

PATIENT
  Sex: Male

DRUGS (1)
  1. ENBREL [Suspect]
     Indication: PSORIASIS
     Route: 058
     Dates: start: 20050617, end: 20081001

REACTIONS (3)
  - CHOLECYSTITIS INFECTIVE [None]
  - HODGKIN'S DISEASE [None]
  - INFLAMMATION [None]
